FAERS Safety Report 4940032-8 (Version None)
Quarter: 2006Q1

REPORT INFORMATION
  Report Type: 
  Country: None (occurrence: None)
  Receive Date: 20060310
  Receipt Date: 20060126
  Transmission Date: 20060701
  Serious: Yes (Hospitalization, Other)
  Sender: FDA-Public Use
  Company Number: DE-BRISTOL-MYERS SQUIBB COMPANY-13263397

PATIENT
  Age: 49 Year
  Sex: Male
  Weight: 85 kg

DRUGS (3)
  1. SUSTIVA [Suspect]
     Dates: start: 20051011, end: 20060101
  2. ZIDOVUDINE [Concomitant]
     Dosage: THERAPY FOR YEARS
     Dates: start: 20051011
  3. ZALCITABINE [Concomitant]
     Dosage: DOSING: MORNING AND EVENING FOR YEARS
     Dates: start: 20051011

REACTIONS (1)
  - HEPATITIS CHOLESTATIC [None]
